FAERS Safety Report 22533399 (Version 1)
Quarter: 2023Q2

REPORT INFORMATION
  Report Type: Spontaneous
  Country: AU (occurrence: None)
  Receive Date: 20230608
  Receipt Date: 20230608
  Transmission Date: 20230721
  Serious: Yes (Other)
  Sender: FDA-Public Use
  Company Number: 2023A126005

PATIENT
  Age: 44 Year
  Sex: Male

DRUGS (1)
  1. OSIMERTINIB [Suspect]
     Active Substance: OSIMERTINIB

REACTIONS (4)
  - Pancytopenia [Unknown]
  - Aplastic anaemia [Unknown]
  - Neutropenia [Unknown]
  - Thrombocytopenia [Unknown]
